FAERS Safety Report 8087105-1 (Version None)
Quarter: 2012Q1

REPORT INFORMATION
  Report Type: 
  Country: None (occurrence: None)
  Receive Date: 20120128
  Receipt Date: 20110523
  Transmission Date: 20120608
  Serious: No
  Sender: FDA-Public Use
  Company Number: US-ABBOTT-11P-163-0727966-00

PATIENT
  Age: 36 Year
  Sex: Female

DRUGS (4)
  1. TRIAMTERENE AND HYDROCHLOROTHIAZIDE [Concomitant]
     Indication: HYPERTENSION
     Route: 048
  2. HUMIRA [Suspect]
     Indication: PSORIASIS
     Dates: start: 20110201
  3. AMLODIPINE [Concomitant]
     Indication: HYPERTENSION
     Route: 048
  4. THEOPHYLLINE [Concomitant]
     Indication: ASTHMA

REACTIONS (2)
  - BRONCHITIS [None]
  - PAIN [None]
